FAERS Safety Report 11106079 (Version 2)
Quarter: 2015Q2

REPORT INFORMATION
  Report Type: Spontaneous
  Country: EE (occurrence: EE)
  Receive Date: 20150512
  Receipt Date: 20150527
  Transmission Date: 20150821
  Serious: Yes (Hospitalization, Other)
  Sender: FDA-Public Use
  Company Number: EE-BIOGENIDEC-2015BI058110

PATIENT
  Age: 33 Year
  Sex: Male
  Weight: 67 kg

DRUGS (2)
  1. TYSABRI [Suspect]
     Active Substance: NATALIZUMAB
     Indication: MULTIPLE SCLEROSIS
     Route: 042
     Dates: start: 20130430, end: 20150211
  2. VITAMIN D3 [Concomitant]
     Active Substance: CHOLECALCIFEROL

REACTIONS (2)
  - Hodgkin^s disease [Not Recovered/Not Resolved]
  - Paraparesis [Unknown]

NARRATIVE: CASE EVENT DATE: 20150311
